FAERS Safety Report 7227740-3 (Version None)
Quarter: 2011Q1

REPORT INFORMATION
  Report Type: 
  Country: None (occurrence: None)
  Receive Date: 20110114
  Receipt Date: 20101103
  Transmission Date: 20110831
  Serious: Yes (Other)
  Sender: FDA-Public Use
  Company Number: PHHY2010US81324

PATIENT
  Age: 84 Year
  Sex: Female

DRUGS (8)
  1. REFRESH [Suspect]
  2. FISH OIL [Concomitant]
  3. GENTEAL PM LUBRICANT EYE OINTMENT [Suspect]
     Route: 047
  4. GENTEAL GEL [Suspect]
     Route: 047
  5. FLAXSEED OIL [Concomitant]
  6. ACTONEL [Concomitant]
  7. MULTIVITAMIN [Concomitant]
  8. CENTRUM SILVER [Concomitant]

REACTIONS (4)
  - EYE IRRITATION [None]
  - EYE DISORDER [None]
  - MACULAR DEGENERATION [None]
  - GLAUCOMA [None]
